FAERS Safety Report 17044489 (Version 2)
Quarter: 2020Q3

REPORT INFORMATION
  Report Type: Spontaneous
  Country: CA (occurrence: CA)
  Receive Date: 20191118
  Receipt Date: 20200730
  Transmission Date: 20201102
  Serious: Yes (Other)
  Sender: FDA-Public Use
  Company Number: CA-PFIZER INC-2019494889

PATIENT
  Age: 44 Year
  Sex: Male
  Weight: 87 kg

DRUGS (2)
  1. LEUCOVORIN [CALCIUM FOLINATE] [Concomitant]
     Active Substance: LEUCOVORIN
     Dosage: UNK
  2. OXALIPLATIN. [Suspect]
     Active Substance: OXALIPLATIN
     Indication: COLORECTAL CANCER METASTATIC
     Dosage: 157 MG, CYCLIC (1 EVERY 2 WEEKS)
     Route: 042

REACTIONS (4)
  - Erythema [Recovered/Resolved]
  - Dyspnoea [Recovered/Resolved]
  - Flushing [Recovered/Resolved]
  - Hypotension [Recovered/Resolved]
